FAERS Safety Report 7037818-5 (Version None)
Quarter: 2010Q4

REPORT INFORMATION
  Report Type: 
  Country: None (occurrence: None)
  Receive Date: 20101011
  Receipt Date: 20100930
  Transmission Date: 20110411
  Serious: Yes (Hospitalization)
  Sender: FDA-Public Use
  Company Number: US-ROCHE-730989

PATIENT
  Age: 67 Year
  Sex: Male
  Weight: 88 kg

DRUGS (2)
  1. BEVACIZUMAB [Suspect]
     Dosage: FORM: INJECTION FOR INFUSION; ON DAY 1 AND 15 OF 28-DAY CYCLE
     Route: 042
     Dates: start: 20060821
  2. ERLOTINIB HYDROCHLORIDE [Suspect]
     Dosage: FOR 28 DAYS
     Route: 048
     Dates: start: 20060821

REACTIONS (4)
  - ABDOMINAL PAIN [None]
  - BILE DUCT STENOSIS [None]
  - BLOOD BILIRUBIN INCREASED [None]
  - CHOLECYSTITIS [None]
